FAERS Safety Report 10613824 (Version 3)
Quarter: 2015Q1

REPORT INFORMATION
  Report Type: Report from Study
  Country: US (occurrence: US)
  Receive Date: 20141128
  Receipt Date: 20150129
  Transmission Date: 20150720
  Serious: Yes (Death, Hospitalization, Other)
  Sender: FDA-Public Use
  Company Number: US-AMGEN-USASL2014092530

PATIENT
  Age: 85 Year
  Sex: Female
  Weight: 70.75 kg

DRUGS (1)
  1. PROLIA [Suspect]
     Active Substance: DENOSUMAB
     Indication: PRODUCT USED FOR UNKNOWN INDICATION
     Dosage: 60 MG, UNK
     Route: 058
     Dates: start: 20140613

REACTIONS (5)
  - Acute myocardial infarction [Unknown]
  - Acute respiratory failure [Unknown]
  - Death [Fatal]
  - Urosepsis [Unknown]
  - Hypoxia [Unknown]

NARRATIVE: CASE EVENT DATE: 20141023
